FAERS Safety Report 9893350 (Version 1)
Quarter: 2014Q1

REPORT INFORMATION
  Report Type: Spontaneous
  Country: US (occurrence: US)
  Receive Date: 20140213
  Receipt Date: 20140213
  Transmission Date: 20141002
  Serious: Yes (Hospitalization)
  Sender: FDA-Public Use
  Company Number: US-JNJFOC-20140203556

PATIENT
  Age: 55 Year
  Sex: Female
  Weight: 107.05 kg

DRUGS (1)
  1. STELARA [Suspect]
     Indication: PSORIASIS
     Route: 058
     Dates: start: 201309, end: 201310

REACTIONS (1)
  - Myocardial infarction [Recovered/Resolved]
